FAERS Safety Report 6613246-9 (Version None)
Quarter: 2010Q1

REPORT INFORMATION
  Report Type: 
  Country: None (occurrence: None)
  Receive Date: 20100225
  Receipt Date: 20100218
  Transmission Date: 20100710
  Serious: Yes (Other)
  Sender: FDA-Public Use
  Company Number: 20100075

PATIENT
  Sex: Female

DRUGS (5)
  1. CYANOCOBALAMIN [Suspect]
     Indication: VITAMIN B12 DEFICIENCY
     Dosage: UNKNOWN MONTHLY
     Dates: start: 20100212, end: 20100212
  2. FIORICET [Concomitant]
  3. LUNESTA [Concomitant]
  4. VITAMIN D [Concomitant]
  5. VITAMINS [Concomitant]

REACTIONS (9)
  - CHILLS [None]
  - DYSPNOEA EXERTIONAL [None]
  - FATIGUE [None]
  - HYPOAESTHESIA [None]
  - HYPOAESTHESIA FACIAL [None]
  - MUSCULOSKELETAL PAIN [None]
  - PALPITATIONS [None]
  - SENSATION OF HEAVINESS [None]
  - VISION BLURRED [None]
